FAERS Safety Report 10168663 (Version 1)
Quarter: 2014Q2

REPORT INFORMATION
  Report Type: Spontaneous
  Country: US (occurrence: None)
  Receive Date: 20140512
  Receipt Date: 20140512
  Transmission Date: 20141212
  Serious: Yes (Other)
  Sender: FDA-Public Use
  Company Number: None

PATIENT
  Age: 47 Year
  Sex: 0

DRUGS (2)
  1. COMPAZINE [Suspect]
     Indication: NAUSEA
     Route: 048
     Dates: start: 20140501, end: 20140504
  2. COMPAZINE [Suspect]
     Indication: VOMITING
     Route: 048
     Dates: start: 20140501, end: 20140504

REACTIONS (3)
  - Dystonia [None]
  - Respiratory disorder [None]
  - Movement disorder [None]
